FAERS Safety Report 9501634 (Version 4)
Quarter: 2014Q3

REPORT INFORMATION
  Report Type: Spontaneous
  Country: US (occurrence: US)
  Receive Date: 20130905
  Receipt Date: 20140919
  Transmission Date: 20150326
  Serious: Yes (Hospitalization, Other)
  Sender: FDA-Public Use
  Company Number: US-BAYER-2013-105457

PATIENT
  Age: 22 Year
  Sex: Female
  Weight: 68.93 kg

DRUGS (11)
  1. MARIJUANA [Concomitant]
     Active Substance: CANNABIS SATIVA SUBSP. INDICA TOP
  2. VICODIN [Concomitant]
     Active Substance: ACETAMINOPHEN\HYDROCODONE BITARTRATE
     Indication: PAIN
  3. MISOPROSTOL. [Concomitant]
     Active Substance: MISOPROSTOL
  4. DOXYCYCLINE. [Concomitant]
     Active Substance: DOXYCYCLINE
  5. AZITHROMYCIN [Concomitant]
     Active Substance: AZITHROMYCIN ANHYDROUS
     Indication: CHLAMYDIAL INFECTION
  6. ASPIRIN. [Concomitant]
     Active Substance: ASPIRIN
  7. MIRENA [Suspect]
     Active Substance: LEVONORGESTREL
     Indication: CONTRACEPTION
     Dosage: 20 MCG/24HR, CONT
     Route: 015
     Dates: start: 20091027, end: 20120307
  8. IBUPROFEN. [Concomitant]
     Active Substance: IBUPROFEN
  9. VALIUM [Concomitant]
     Active Substance: DIAZEPAM
  10. PERCOCET [Concomitant]
     Active Substance: ACETAMINOPHEN\OXYCODONE HYDROCHLORIDE
  11. MIRENA [Suspect]
     Active Substance: LEVONORGESTREL
     Indication: MENORRHAGIA

REACTIONS (12)
  - Device dislocation [None]
  - Injury [None]
  - Pain [None]
  - Device breakage [None]
  - Medical device complication [None]
  - Uterine perforation [None]
  - Medical device pain [None]
  - Anxiety [None]
  - Depression [None]
  - Device difficult to use [None]
  - Abdominal pain [None]
  - Infection [None]

NARRATIVE: CASE EVENT DATE: 20120228
